FAERS Safety Report 11372910 (Version 1)
Quarter: 2015Q3

REPORT INFORMATION
  Report Type: Spontaneous
  Country: US (occurrence: US)
  Receive Date: 20150811
  Receipt Date: 20150811
  Transmission Date: 20151125
  Serious: No
  Sender: FDA-Public Use
  Company Number: US-ELI_LILLY_AND_COMPANY-US201202002631

PATIENT
  Age: 46 Year
  Sex: Male
  Weight: 74.83 kg

DRUGS (3)
  1. TYVASO [Concomitant]
     Active Substance: TREPROSTINIL
     Indication: PULMONARY ARTERIAL HYPERTENSION
     Dosage: 0.6 ML, QID
     Route: 055
     Dates: start: 20101230
  2. ADCIRCA [Suspect]
     Active Substance: TADALAFIL
     Dosage: 1 DF, UNKNOWN
  3. TRACLEER [Concomitant]
     Active Substance: BOSENTAN

REACTIONS (2)
  - Diarrhoea [Unknown]
  - Headache [Unknown]
